FAERS Safety Report 21053584 (Version 3)
Quarter: 2022Q3

REPORT INFORMATION
  Report Type: Report from Study
  Country: US (occurrence: US)
  Receive Date: 20220707
  Receipt Date: 20220916
  Transmission Date: 20221026
  Serious: Yes (Hospitalization, Other)
  Sender: FDA-Public Use
  Company Number: US-ARGENX-2022-ARGX-US000712

PATIENT

DRUGS (1)
  1. VYVGART [Suspect]
     Active Substance: EFGARTIGIMOD ALFA-FCAB
     Indication: Myasthenia gravis
     Dosage: 1130 MG, 400MG/20 ML
     Dates: start: 20220428

REACTIONS (18)
  - Diaphragmatic disorder [Recovered/Resolved]
  - Dyspnoea [Recovered/Resolved]
  - Myasthenia gravis crisis [Unknown]
  - Fatigue [Not Recovered/Not Resolved]
  - Therapeutic response shortened [Unknown]
  - Asthenia [Not Recovered/Not Resolved]
  - Fatigue [Not Recovered/Not Resolved]
  - Asthenia [Unknown]
  - Aphonia [Unknown]
  - Dysarthria [Unknown]
  - Dyspnoea exertional [Unknown]
  - Eyelid ptosis [Not Recovered/Not Resolved]
  - Condition aggravated [Unknown]
  - Depressed mood [Unknown]
  - Frustration tolerance decreased [Unknown]
  - Choking [Unknown]
  - Dysstasia [Unknown]
  - Mastication disorder [Unknown]

NARRATIVE: CASE EVENT DATE: 20220602
